FAERS Safety Report 13843477 (Version 1)
Quarter: 2017Q3

REPORT INFORMATION
  Report Type: Spontaneous
  Country: US (occurrence: US)
  Receive Date: 20170808
  Receipt Date: 20170808
  Transmission Date: 20171127
  Serious: No
  Sender: FDA-Public Use
  Company Number: US-GLAXOSMITHKLINE-US2017121984

PATIENT
  Sex: Male

DRUGS (7)
  1. FUROSEMIDE. [Concomitant]
     Active Substance: FUROSEMIDE
  2. SPIRIVA [Concomitant]
     Active Substance: TIOTROPIUM BROMIDE MONOHYDRATE
  3. PRAVASTATIN. [Concomitant]
     Active Substance: PRAVASTATIN
  4. ADVAIR DISKUS [Suspect]
     Active Substance: FLUTICASONE PROPIONATE\SALMETEROL XINAFOATE
     Indication: CHRONIC OBSTRUCTIVE PULMONARY DISEASE
     Dosage: 1 PUFF(S), BID
     Route: 055
  5. METOPROLOL. [Concomitant]
     Active Substance: METOPROLOL
  6. ALBUTEROL NEBULISER SOLUTION [Concomitant]
     Active Substance: ALBUTEROL SULFATE
  7. MUCINEX [Concomitant]
     Active Substance: GUAIFENESIN

REACTIONS (1)
  - Dysphonia [Not Recovered/Not Resolved]
